FAERS Safety Report 9460775 (Version 1)
Quarter: 2013Q3

REPORT INFORMATION
  Report Type: Spontaneous
  Country: JP (occurrence: JP)
  Receive Date: 20130815
  Receipt Date: 20130815
  Transmission Date: 20140515
  Serious: Yes (Hospitalization)
  Sender: FDA-Public Use
  Company Number: JP-B.I. PHARMACEUTICALS,INC./RIDGEFIELD-2013-BI-23995NB

PATIENT
  Age: 88 Year
  Sex: Male

DRUGS (1)
  1. PRAZAXA [Suspect]
     Dosage: 220 MG
     Route: 048
     Dates: start: 20130619

REACTIONS (2)
  - Pneumonia aspiration [Unknown]
  - Regurgitation [Unknown]
